FAERS Safety Report 5376079-X (Version None)
Quarter: 2007Q3

REPORT INFORMATION
  Report Type: 
  Country: None (occurrence: None)
  Receive Date: 20070702
  Receipt Date: 20070618
  Transmission Date: 20080115
  Serious: Yes (Hospitalization)
  Sender: FDA-Public Use
  Company Number: CH-AMGEN-US231518

PATIENT

DRUGS (2)
  1. ENBREL [Suspect]
     Indication: DRUG USE FOR UNKNOWN INDICATION
     Dosage: UNKNOWN
  2. METHOTREXATE [Suspect]
     Dosage: UNSPECIFIED

REACTIONS (3)
  - LOWER RESPIRATORY TRACT INFECTION [None]
  - PNEUMONIA [None]
  - UROGENITAL INFECTION BACTERIAL [None]
